FAERS Safety Report 24551040 (Version 2)
Quarter: 2024Q4

REPORT INFORMATION
  Report Type: Spontaneous
  Country: CA (occurrence: CA)
  Receive Date: 20241025
  Receipt Date: 20241225
  Transmission Date: 20250115
  Serious: Yes (Hospitalization, Other)
  Sender: TEVA
  Company Number: CA-TEVA-VS-3255458

PATIENT
  Age: 16 Year
  Sex: Female

DRUGS (1)
  1. OLANZAPINE [Suspect]
     Active Substance: OLANZAPINE
     Indication: Anorexia nervosa
     Route: 065

REACTIONS (3)
  - Bradycardia [Unknown]
  - Off label use [Unknown]
  - Off label use [Unknown]
